FAERS Safety Report 5997351-6 (Version None)
Quarter: 2008Q4

REPORT INFORMATION
  Report Type: 
  Country: None (occurrence: None)
  Receive Date: 20081210
  Receipt Date: 20081127
  Transmission Date: 20090506
  Serious: Yes (Hospitalization, Other)
  Sender: FDA-Public Use
  Company Number: 2008098959

PATIENT
  Sex: Female

DRUGS (5)
  1. DALTEPARIN SODIUM [Suspect]
     Indication: HOMOCYSTINAEMIA
     Dosage: SUBCUTANEOUS
     Route: 058
     Dates: start: 20080824, end: 20081118
  2. ESTROFEM        (ESTRADIOL, ESTRIOL) [Concomitant]
  3. AGOLUTIN   (PROGESTERONE) [Concomitant]
  4. FOLIC ACID [Concomitant]
  5. PREGNYL [Concomitant]

REACTIONS (6)
  - BLOOD FIBRINOGEN INCREASED [None]
  - DRUG EXPOSURE DURING PREGNANCY [None]
  - FIBRIN D DIMER INCREASED [None]
  - HAEMORRHAGE [None]
  - TWIN PREGNANCY [None]
  - UTERINE HAEMATOMA [None]
